FAERS Safety Report 12833101 (Version 2)
Quarter: 2016Q4

REPORT INFORMATION
  Report Type: Spontaneous
  Country: JP (occurrence: JP)
  Receive Date: 20161010
  Receipt Date: 20161228
  Transmission Date: 20170207
  Serious: Yes (Death, Hospitalization, Other)
  Sender: FDA-Public Use
  Company Number: JP-TEVA-698803ACC

PATIENT
  Age: 8 Decade
  Sex: Male

DRUGS (1)
  1. BENDAMUSTINE HYDROCHLORIDE. [Suspect]
     Active Substance: BENDAMUSTINE HYDROCHLORIDE
     Indication: B-CELL LYMPHOMA
     Route: 042

REACTIONS (6)
  - Decreased appetite [Unknown]
  - Cytomegalovirus infection [Fatal]
  - Altered state of consciousness [Unknown]
  - Altered state of consciousness [Recovered/Resolved]
  - Eye disorder [Unknown]
  - Blood creatinine increased [Unknown]

NARRATIVE: CASE EVENT DATE: 201505
